FAERS Safety Report 9458766 (Version 1)
Quarter: 2013Q3

REPORT INFORMATION
  Report Type: Spontaneous
  Country: US (occurrence: US)
  Receive Date: 20130814
  Receipt Date: 20130814
  Transmission Date: 20140515
  Serious: Yes (Hospitalization)
  Sender: FDA-Public Use
  Company Number: US-CELGENEUS-163-20785-13081182

PATIENT
  Sex: Male

DRUGS (3)
  1. THALOMID [Suspect]
     Indication: HODGKIN^S DISEASE NODULAR SCLEROSIS
     Dosage: 50 MILLIGRAM
     Route: 048
     Dates: start: 201307
  2. THALOMID [Suspect]
     Dosage: 100 MILLIGRAM
     Route: 048
     Dates: start: 201308
  3. ZINADOL [Suspect]
     Indication: PRODUCT USED FOR UNKNOWN INDICATION
     Route: 065

REACTIONS (1)
  - Unevaluable event [Unknown]
